FAERS Safety Report 14651224 (Version 2)
Quarter: 2018Q2

REPORT INFORMATION
  Report Type: Spontaneous
  Country: GB (occurrence: GB)
  Receive Date: 20180316
  Receipt Date: 20180411
  Transmission Date: 20180711
  Serious: Yes (Other)
  Sender: FDA-Public Use
  Company Number: GB-GILEAD-2018-0327618

PATIENT
  Age: 81 Year
  Sex: Female

DRUGS (14)
  1. IKOREL [Concomitant]
     Active Substance: NICORANDIL
  2. LANSOPRAZOLE. [Concomitant]
     Active Substance: LANSOPRAZOLE
  3. RANOLAZINE. [Suspect]
     Active Substance: RANOLAZINE
     Indication: PRODUCT USED FOR UNKNOWN INDICATION
     Dosage: UNK
     Route: 065
     Dates: start: 20170613, end: 201710
  4. TICAGRELOR. [Suspect]
     Active Substance: TICAGRELOR
     Indication: PRODUCT USED FOR UNKNOWN INDICATION
     Dosage: UNK
     Route: 065
     Dates: start: 20170613, end: 201710
  5. DILTIAZEM. [Concomitant]
     Active Substance: DILTIAZEM
  6. NICORANDIL [Concomitant]
     Active Substance: NICORANDIL
  7. GLIMEPIRIDE. [Concomitant]
     Active Substance: GLIMEPIRIDE
  8. NICORANDIL [Concomitant]
     Active Substance: NICORANDIL
  9. CANDESARTAN. [Concomitant]
     Active Substance: CANDESARTAN
  10. BUMETANIDE. [Concomitant]
     Active Substance: BUMETANIDE
  11. ACETYLSALICYLIC ACID [Concomitant]
     Active Substance: ASPIRIN
  12. ISOSORBIDE DINITRATE. [Concomitant]
     Active Substance: ISOSORBIDE DINITRATE
  13. DILTIAZEM. [Concomitant]
     Active Substance: DILTIAZEM
  14. ISOTARD                            /07346401/ [Concomitant]

REACTIONS (20)
  - Tinnitus [Not Recovered/Not Resolved]
  - Neck pain [Not Recovered/Not Resolved]
  - Insomnia [Unknown]
  - Urticaria [Unknown]
  - Constipation [Unknown]
  - Headache [Not Recovered/Not Resolved]
  - Dysgeusia [Not Recovered/Not Resolved]
  - Nausea [Unknown]
  - Discomfort [Not Recovered/Not Resolved]
  - Muscle twitching [Unknown]
  - Anxiety [Unknown]
  - Swelling [Unknown]
  - Asthenia [Unknown]
  - Muscle spasms [Unknown]
  - Dehydration [Unknown]
  - Contusion [Unknown]
  - Coordination abnormal [Unknown]
  - Dyspnoea [Unknown]
  - Fatigue [Unknown]
  - Sluggishness [Unknown]

NARRATIVE: CASE EVENT DATE: 2017
